FAERS Safety Report 5318894-4 (Version None)
Quarter: 2007Q1

REPORT INFORMATION
  Report Type: 
  Country: None (occurrence: None)
  Receive Date: 20070201
  Receipt Date: 20061201
  Transmission Date: 20070707
  Serious: No
  Sender: FDA-Public Use
  Company Number: VNL_0313_2006

PATIENT
  Age: 64 Year
  Sex: Female
  Weight: 51.4833 kg

DRUGS (5)
  1. APOKYN [Suspect]
     Indication: PARKINSON'S DISEASE
     Dosage: VAR PRN SC
     Route: 058
     Dates: start: 20061001
  2. SINEMET [Concomitant]
  3. COMTAN [Concomitant]
  4. REQUIP [Concomitant]
  5. LEVOXYL [Concomitant]

REACTIONS (4)
  - BALANCE DISORDER [None]
  - BLOOD PRESSURE FLUCTUATION [None]
  - DIZZINESS [None]
  - PHARMACEUTICAL PRODUCT COMPLAINT [None]
